FAERS Safety Report 21810126 (Version 1)
Quarter: 2023Q1

REPORT INFORMATION
  Report Type: Spontaneous
  Country: US (occurrence: US)
  Receive Date: 20230103
  Receipt Date: 20230103
  Transmission Date: 20230418
  Serious: Yes (Hospitalization)
  Sender: FDA-Public Use
  Company Number: US-002147023-NVSC2022US300589

PATIENT
  Age: 85 Year
  Sex: Female

DRUGS (6)
  1. ATORVASTATIN [Suspect]
     Active Substance: ATORVASTATIN
     Indication: Product used for unknown indication
     Dosage: 40 MG, QD
     Route: 065
  2. METOLAZONE [Suspect]
     Active Substance: METOLAZONE
     Indication: Cardiac failure congestive
     Dosage: 5 MG, PRN (FOR SHORTNESS OF BREATH OR IF SHE GAINS 2-3 BS)
     Route: 065
     Dates: start: 202206
  3. FAMOTIDINE [Suspect]
     Active Substance: FAMOTIDINE
     Indication: Dyspepsia
     Dosage: 20 MG, QD
     Route: 065
  4. TORSEMIDE [Concomitant]
     Active Substance: TORSEMIDE
     Indication: Cardiac disorder
     Dosage: 20 MG, 3 IN THE MORNING AND 3 IN THE EVENING
     Route: 065
     Dates: start: 202205
  5. SPIRONOLACTONE [Concomitant]
     Active Substance: SPIRONOLACTONE
     Indication: Blood pressure abnormal
     Dosage: 25 MG, QD
     Route: 065
  6. OXYGEN [Concomitant]
     Active Substance: OXYGEN
     Indication: Cardiac failure congestive
     Dosage: 2 LITRE, CONT (3 YEARS AGO)
     Route: 065

REACTIONS (2)
  - Dyspnoea [Recovered/Resolved with Sequelae]
  - Rales [Recovered/Resolved with Sequelae]

NARRATIVE: CASE EVENT DATE: 20221118
